FAERS Safety Report 4564591-2 (Version None)
Quarter: 2005Q1

REPORT INFORMATION
  Report Type: 
  Country: None (occurrence: None)
  Receive Date: 20050126
  Receipt Date: 20050117
  Transmission Date: 20050727
  Serious: Yes (Hospitalization)
  Sender: FDA-Public Use
  Company Number: US_021190169

PATIENT
  Age: 5 Year
  Sex: Male
  Weight: 15 kg

DRUGS (4)
  1. HUMATROPE [Suspect]
     Indication: GROWTH HORMONE DEFICIENCY
     Dosage: 0.4 MG/DAY
     Dates: start: 20010814
  2. LEVOTHYROXINE SODIUM [Concomitant]
  3. TEGRETOL [Concomitant]
  4. FOLIC ACID [Concomitant]

REACTIONS (2)
  - GASTROENTERITIS ROTAVIRUS [None]
  - PNEUMONIA [None]
